FAERS Safety Report 6050976-4 (Version None)
Quarter: 2009Q1

REPORT INFORMATION
  Report Type: 
  Country: None (occurrence: None)
  Receive Date: 20090122
  Receipt Date: 20090122
  Transmission Date: 20090719
  Serious: No
  Sender: FDA-Public Use
  Company Number: None

PATIENT
  Age: 83 Year
  Sex: Male
  Weight: 83.0083 kg

DRUGS (1)
  1. RIFAMPICIN [Suspect]
     Indication: BRONCHIECTASIS
     Dosage: UNKNOWN 2 TAB. DAILY PO
     Route: 048
     Dates: start: 20080818, end: 20081114

REACTIONS (3)
  - CHEST PAIN [None]
  - PAIN IN EXTREMITY [None]
  - TENDON PAIN [None]
